FAERS Safety Report 5119409-6 (Version None)
Quarter: 2006Q3

REPORT INFORMATION
  Report Type: 
  Country: None (occurrence: None)
  Receive Date: 20060928
  Receipt Date: 20060921
  Transmission Date: 20061208
  Serious: Yes (Hospitalization)
  Sender: FDA-Public Use
  Company Number: 230172

PATIENT
  Age: 84 Year
  Sex: Male
  Weight: 78.9 kg

DRUGS (4)
  1. LUCENTIS [Suspect]
     Indication: MACULAR DEGENERATION
     Dosage: INTRAVITREAL
  2. MEDICATION (UNK INGREDIENT) (GENERIC COMPONENTS) [Concomitant]
  3. INSULIN [Concomitant]
  4. PREDNISONE TAB [Concomitant]

REACTIONS (1)
  - BLOOD GLUCOSE INCREASED [None]
